FAERS Safety Report 18488842 (Version 1)
Quarter: 2020Q4

REPORT INFORMATION
  Report Type: Other
  Country: KR (occurrence: KR)
  Receive Date: 20201111
  Receipt Date: 20201111
  Transmission Date: 20210114
  Serious: Yes (Hospitalization, Other)
  Sender: FDA-Public Use
  Company Number: KR-ROCHE-2653186

PATIENT
  Age: 57 Year
  Sex: Female

DRUGS (28)
  1. DOCETAXEL. [Suspect]
     Active Substance: DOCETAXEL
     Indication: BREAST CANCER
     Route: 042
     Dates: start: 20190417, end: 20190514
  2. PERTUZUMAB. [Suspect]
     Active Substance: PERTUZUMAB
     Route: 065
     Dates: start: 20190514
  3. TRASTUZUMAB. [Suspect]
     Active Substance: TRASTUZUMAB
     Route: 042
     Dates: start: 20190514, end: 20190514
  4. TRASTUZUMAB. [Suspect]
     Active Substance: TRASTUZUMAB
     Route: 042
     Dates: start: 20190708, end: 20190708
  5. TYLENOL 8HR [Concomitant]
     Active Substance: ACETAMINOPHEN
     Indication: BREAST CANCER
     Route: 048
     Dates: start: 20190416, end: 20190806
  6. ENTELON [Concomitant]
     Route: 048
     Dates: start: 20190404
  7. PERTUZUMAB. [Suspect]
     Active Substance: PERTUZUMAB
     Route: 065
     Dates: start: 20190611
  8. PERTUZUMAB. [Suspect]
     Active Substance: PERTUZUMAB
     Route: 065
     Dates: start: 20190708
  9. PERTUZUMAB. [Suspect]
     Active Substance: PERTUZUMAB
     Indication: BREAST CANCER
     Dosage: ONCE
     Route: 065
     Dates: start: 20190416
  10. PERTUZUMAB. [Suspect]
     Active Substance: PERTUZUMAB
     Route: 065
     Dates: start: 20190806
  11. TRASTUZUMAB. [Suspect]
     Active Substance: TRASTUZUMAB
     Indication: BREAST CANCER
     Route: 042
     Dates: start: 20190416, end: 20190416
  12. TRASTUZUMAB. [Suspect]
     Active Substance: TRASTUZUMAB
     Route: 042
     Dates: start: 20190806, end: 20190806
  13. DOCETAXEL. [Suspect]
     Active Substance: DOCETAXEL
     Route: 042
     Dates: start: 20190708, end: 20190708
  14. LASIX [Concomitant]
     Active Substance: FUROSEMIDE
     Indication: OEDEMA PERIPHERAL
     Dates: start: 20190812, end: 20190819
  15. TRASTUZUMAB. [Suspect]
     Active Substance: TRASTUZUMAB
     Route: 042
     Dates: start: 20190611, end: 20190611
  16. OXYNORM [Concomitant]
     Active Substance: OXYCODONE HYDROCHLORIDE
     Route: 042
     Dates: start: 20190812, end: 20190825
  17. MEGACE ORAL SUSPENSION [Concomitant]
     Route: 048
     Dates: start: 20190812, end: 20190813
  18. JURNISTA [Concomitant]
     Active Substance: HYDROMORPHONE HYDROCHLORIDE
     Route: 048
     Dates: start: 20190808
  19. NEURONTIN [Concomitant]
     Active Substance: GABAPENTIN
     Route: 048
     Dates: start: 20190814, end: 20190820
  20. TRIDOL [Concomitant]
     Active Substance: TRAMADOL HYDROCHLORIDE
     Route: 042
     Dates: start: 20190812, end: 20190816
  21. QUETAPIN [Concomitant]
     Indication: DELIRIUM
     Route: 048
     Dates: start: 20190425
  22. DOCETAXEL. [Suspect]
     Active Substance: DOCETAXEL
     Route: 042
     Dates: start: 20190806, end: 20190806
  23. BROPIUM [Concomitant]
     Route: 042
     Dates: start: 20190812, end: 20190812
  24. SMOFKABIVEN [Concomitant]
     Active Substance: AMINO ACIDS\DEXTROSE\ELECTROLYTES NOS\SOYBEAN OIL
     Dates: start: 20190812, end: 20190813
  25. MORPHINE HCL [Concomitant]
     Active Substance: MORPHINE HYDROCHLORIDE
     Route: 042
     Dates: start: 20190402
  26. DOCETAXEL. [Suspect]
     Active Substance: DOCETAXEL
     Route: 042
     Dates: start: 20190611, end: 20190611
  27. BUSPAR [Concomitant]
     Active Substance: BUSPIRONE HYDROCHLORIDE
     Indication: DELIRIUM
     Route: 048
     Dates: start: 20190427, end: 20190911
  28. DEXAMETHASONE DISODIUM PHOSPHATE [Concomitant]
     Active Substance: DEXAMETHASONE SODIUM PHOSPHATE
     Indication: BREAST CANCER
     Route: 042
     Dates: start: 20190416, end: 20190806

REACTIONS (7)
  - Diarrhoea [Recovered/Resolved]
  - Periodontitis [Recovered/Resolved with Sequelae]
  - Oedema peripheral [Recovered/Resolved]
  - Groin pain [Recovered/Resolved]
  - Tooth extraction [Recovered/Resolved]
  - Chronic inflammatory demyelinating polyradiculoneuropathy [Recovering/Resolving]
  - Febrile neutropenia [Recovered/Resolved]

NARRATIVE: CASE EVENT DATE: 20190811
